FAERS Safety Report 26113158 (Version 1)
Quarter: 2025Q4

REPORT INFORMATION
  Report Type: Spontaneous
  Country: KR (occurrence: None)
  Receive Date: 20251202
  Receipt Date: 20251202
  Transmission Date: 20260117
  Serious: Yes (Other)
  Sender: UCB
  Company Number: KR-UCBSA-2025075722

PATIENT

DRUGS (1)
  1. KEPPRA [Suspect]
     Active Substance: LEVETIRACETAM
     Indication: Metastases to central nervous system
     Dosage: 750 MILLIGRAM, 2X/DAY (BID)

REACTIONS (1)
  - Depressed level of consciousness [Recovered/Resolved]
